FAERS Safety Report 5450363-3 (Version None)
Quarter: 2007Q3

REPORT INFORMATION
  Report Type: 
  Country: None (occurrence: None)
  Receive Date: 20070912
  Receipt Date: 20070831
  Transmission Date: 20080115
  Serious: Yes (Hospitalization, Other)
  Sender: FDA-Public Use
  Company Number: US-PFIZER INC-2007073356

PATIENT
  Sex: Female
  Weight: 59 kg

DRUGS (3)
  1. CHANTIX [Suspect]
     Indication: SMOKING CESSATION THERAPY
  2. MONTELUKAST SODIUM [Concomitant]
  3. TIOTROPIUM BROMIDE [Concomitant]

REACTIONS (3)
  - CHEST PAIN [None]
  - DRUG DEPENDENCE [None]
  - GASTROOESOPHAGEAL REFLUX DISEASE [None]
